FAERS Safety Report 20226785 (Version 1)
Quarter: 2021Q4

REPORT INFORMATION
  Report Type: Spontaneous
  Country: US (occurrence: None)
  Receive Date: 20211224
  Receipt Date: 20211224
  Transmission Date: 20220303
  Serious: Yes (Other)
  Sender: FDA-Public Use
  Company Number: 2021A882496

PATIENT
  Age: 21227 Day
  Sex: Female
  Weight: 102 kg

DRUGS (1)
  1. FASENRA [Suspect]
     Active Substance: BENRALIZUMAB
     Indication: Asthma
     Route: 058

REACTIONS (3)
  - COVID-19 [Recovering/Resolving]
  - Rhinorrhoea [Recovering/Resolving]
  - Multiple allergies [Recovering/Resolving]

NARRATIVE: CASE EVENT DATE: 20211215
